FAERS Safety Report 7486239-X (Version None)
Quarter: 2011Q2

REPORT INFORMATION
  Report Type: 
  Country: None (occurrence: None)
  Receive Date: 20110517
  Receipt Date: 20110222
  Transmission Date: 20111010
  Serious: No
  Sender: FDA-Public Use
  Company Number: A0914906A

PATIENT
  Age: 66 Year
  Sex: Male

DRUGS (3)
  1. ACCUPRIL [Concomitant]
  2. VOTRIENT [Suspect]
     Dosage: 200MG THREE TIMES PER DAY
     Route: 048
     Dates: start: 20110201, end: 20110405
  3. BLOOD PRESSURE MEDICATION [Concomitant]
     Indication: HYPERTENSION

REACTIONS (2)
  - HYPERTENSION [None]
  - DIARRHOEA [None]
